FAERS Safety Report 21782119 (Version 5)
Quarter: 2023Q2

REPORT INFORMATION
  Report Type: Report from Study
  Country: US (occurrence: US)
  Receive Date: 20221227
  Receipt Date: 20230619
  Transmission Date: 20230721
  Serious: Yes (Hospitalization)
  Sender: FDA-Public Use
  Company Number: US-ABBVIE-4250382

PATIENT
  Age: 73 Year
  Sex: Female

DRUGS (3)
  1. IMBRUVICA [Suspect]
     Active Substance: IBRUTINIB
     Indication: B-cell small lymphocytic lymphoma
     Route: 048
  2. IMBRUVICA [Suspect]
     Active Substance: IBRUTINIB
     Indication: B-cell small lymphocytic lymphoma
     Route: 048
  3. IMBRUVICA [Suspect]
     Active Substance: IBRUTINIB
     Indication: B-cell small lymphocytic lymphoma
     Dosage: 420 MILLIGRAM
     Route: 048
     Dates: start: 20221202

REACTIONS (2)
  - Transfusion [Unknown]
  - Full blood count abnormal [Unknown]

NARRATIVE: CASE EVENT DATE: 20221217
